FAERS Safety Report 8487361-1 (Version None)
Quarter: 2012Q2

REPORT INFORMATION
  Report Type: 
  Country: None (occurrence: None)
  Receive Date: 20120628
  Receipt Date: 20120628
  Transmission Date: 20120825
  Serious: Yes (Disabling, Other)
  Sender: FDA-Public Use
  Company Number: None

PATIENT
  Sex: Female

DRUGS (1)
  1. ENDOMETRIN [Suspect]
     Indication: IN VITRO FERTILISATION
     Dosage: 100MG 2 TIMES A DAY PO
     Route: 048

REACTIONS (1)
  - HYPOACUSIS [None]
